FAERS Safety Report 20842045 (Version 4)
Quarter: 2022Q3

REPORT INFORMATION
  Report Type: Report from Study
  Country: US (occurrence: None)
  Receive Date: 20220518
  Receipt Date: 20220923
  Transmission Date: 20221026
  Serious: Yes (Other)
  Sender: FDA-Public Use
  Company Number: US-ROCHE-3093626

PATIENT
  Age: 75 Year
  Sex: Male
  Weight: 77 kg

DRUGS (22)
  1. RANIBIZUMAB [Suspect]
     Active Substance: RANIBIZUMAB
     Indication: Neovascular age-related macular degeneration
     Dosage: DOSE OF STUDY DRUG FIRST ADMINISTERED  100 MG/ML, DOSE LAST STUDY DRUG ADMIN PRIOR SAE 10 MG/ML, STA
     Route: 050
     Dates: start: 20201209
  2. RANIBIZUMAB [Suspect]
     Active Substance: RANIBIZUMAB
  3. RANIBIZUMAB [Suspect]
     Active Substance: RANIBIZUMAB
  4. RANIBIZUMAB [Suspect]
     Active Substance: RANIBIZUMAB
  5. RANIBIZUMAB [Suspect]
     Active Substance: RANIBIZUMAB
  6. RANIBIZUMAB [Suspect]
     Active Substance: RANIBIZUMAB
  7. RANIBIZUMAB [Concomitant]
     Active Substance: RANIBIZUMAB
     Dosage: START DATE OF MOST RECENT DOSE OF STUDY DRUG PRIOR TO AE 07/MAR/2022, DOSE OF STUDY DRUG FIRST ADMIN
     Route: 050
     Dates: start: 20201209
  8. CORTISONE [Concomitant]
     Active Substance: CORTISONE
     Indication: Arthralgia
     Route: 030
     Dates: start: 20220414, end: 20220414
  9. MELOXICAM [Concomitant]
     Active Substance: MELOXICAM
     Indication: Arthralgia
     Route: 048
     Dates: start: 20220309
  10. FINASTERIDE [Concomitant]
     Active Substance: FINASTERIDE
     Indication: Urinary retention
     Route: 048
     Dates: start: 2018
  11. CRESTOR [Concomitant]
     Active Substance: ROSUVASTATIN CALCIUM
     Indication: Blood cholesterol
     Route: 048
     Dates: start: 2012
  12. FLONASE [Concomitant]
     Active Substance: FLUTICASONE PROPIONATE
     Indication: Seasonal allergy
     Dates: start: 2006
  13. CLOBETASOL [Concomitant]
     Active Substance: CLOBETASOL
     Indication: Dry skin
     Route: 061
     Dates: start: 2017
  14. FISH OIL [Concomitant]
     Active Substance: FISH OIL
     Route: 048
     Dates: start: 2001
  15. AREDS 2 FORMULA [Concomitant]
     Route: 048
     Dates: start: 2018
  16. TYLENOL [Concomitant]
     Active Substance: ACETAMINOPHEN
     Indication: Arthritis
     Route: 048
     Dates: start: 20181128
  17. ASPIRIN [Concomitant]
     Active Substance: ASPIRIN
     Indication: Cardiovascular event prophylaxis
     Route: 048
     Dates: start: 20190202
  18. UROXATRAL [Concomitant]
     Active Substance: ALFUZOSIN HYDROCHLORIDE
     Indication: Prostatomegaly
     Route: 048
     Dates: start: 202112
  19. TRAMADOL [Concomitant]
     Active Substance: TRAMADOL
     Indication: Abdominal pain upper
     Route: 048
     Dates: start: 20220106
  20. ALFUZOSIN [Concomitant]
     Active Substance: ALFUZOSIN
     Indication: Urinary retention
     Route: 048
     Dates: start: 2016
  21. LANREOTIDE ACETATE [Concomitant]
     Active Substance: LANREOTIDE ACETATE
     Indication: Hepatic neuroendocrine tumour
     Route: 030
     Dates: start: 20210131
  22. CELEBREX [Concomitant]
     Active Substance: CELECOXIB
     Route: 048
     Dates: start: 20220131

REACTIONS (1)
  - Conjunctival disorder [Not Recovered/Not Resolved]

NARRATIVE: CASE EVENT DATE: 20220505
